FAERS Safety Report 7767988-2 (Version None)
Quarter: 2011Q3

REPORT INFORMATION
  Report Type: 
  Country: None (occurrence: None)
  Receive Date: 20110922
  Receipt Date: 20110509
  Transmission Date: 20111222
  Serious: No
  Sender: FDA-Public Use
  Company Number: US-ASTRAZENECA-2011SE27497

PATIENT
  Sex: Female

DRUGS (2)
  1. SEROQUEL [Suspect]
     Route: 048
  2. SEROQUEL [Suspect]
     Indication: HALLUCINATION
     Route: 048

REACTIONS (6)
  - THERAPEUTIC PRODUCT INEFFECTIVE FOR UNAPPROVED INDICATION [None]
  - HALLUCINATION, AUDITORY [None]
  - DRY MOUTH [None]
  - CONSTIPATION [None]
  - TREMOR [None]
  - DRUG PRESCRIBING ERROR [None]
